FAERS Safety Report 19222486 (Version 1)
Quarter: 2021Q2

REPORT INFORMATION
  Report Type: Spontaneous
  Country: US (occurrence: US)
  Receive Date: 20210506
  Receipt Date: 20210506
  Transmission Date: 20210717
  Serious: No
  Sender: FDA-Public Use
  Company Number: None

PATIENT
  Age: 0 Day
  Sex: Female
  Weight: 84.42 kg

DRUGS (4)
  1. AZITHROMYCIN ANHYDROUS. [Concomitant]
     Active Substance: AZITHROMYCIN ANHYDROUS
  2. IBUPROFEN. [Concomitant]
     Active Substance: IBUPROFEN
  3. EQUATE DAYTIME COLD AND FLU [Suspect]
     Active Substance: ACETAMINOPHEN\DEXTROMETHORPHAN HYDROBROMIDE\PHENYLEPHRINE HYDROCHLORIDE
     Indication: COUGH
     Dosage: ?          QUANTITY:1.0144 OUNCE(S);?
     Route: 048
  4. EQUATE DAYTIME COLD AND FLU [Suspect]
     Active Substance: ACETAMINOPHEN\DEXTROMETHORPHAN HYDROBROMIDE\PHENYLEPHRINE HYDROCHLORIDE
     Indication: NASAL DECONGESTION THERAPY
     Dosage: ?          QUANTITY:1.0144 OUNCE(S);?
     Route: 048

REACTIONS (3)
  - Tremor [None]
  - Insomnia [None]
  - Agitation [None]

NARRATIVE: CASE EVENT DATE: 20050909
